FAERS Safety Report 15182894 (Version 10)
Quarter: 2020Q2

REPORT INFORMATION
  Report Type: Spontaneous
  Country: US (occurrence: US)
  Receive Date: 20180723
  Receipt Date: 20200420
  Transmission Date: 20200713
  Serious: Yes (Hospitalization, Other)
  Sender: FDA-Public Use
  Company Number: US-SA-2018SA198914

PATIENT
  Age: 73 Year
  Sex: Female

DRUGS (3)
  1. STELARA [Concomitant]
     Active Substance: USTEKINUMAB
  2. DUPIXENT [Suspect]
     Active Substance: DUPILUMAB
     Indication: DERMATITIS ATOPIC
     Dosage: 300 MG, QOW
     Route: 058
     Dates: start: 201801
  3. DUPIXENT [Suspect]
     Active Substance: DUPILUMAB
     Indication: PSORIASIS

REACTIONS (14)
  - Atrial fibrillation [Unknown]
  - Hemiparaesthesia [Unknown]
  - Dizziness [Unknown]
  - Dry skin [Not Recovered/Not Resolved]
  - Cough [Unknown]
  - Product use in unapproved indication [Unknown]
  - Fall [Unknown]
  - Nasopharyngitis [Unknown]
  - Eczema [Unknown]
  - Wound [Unknown]
  - Rash [Unknown]
  - Asthenia [Unknown]
  - Cardiac ablation [Unknown]
  - Product dose omission [Unknown]

NARRATIVE: CASE EVENT DATE: 2018
